FAERS Safety Report 4879659-0 (Version None)
Quarter: 2006Q1

REPORT INFORMATION
  Report Type: 
  Country: None (occurrence: None)
  Receive Date: 20060111
  Receipt Date: 20051221
  Transmission Date: 20060701
  Serious: Yes (Other)
  Sender: FDA-Public Use
  Company Number: US200512003724

PATIENT
  Sex: Female

DRUGS (4)
  1. FORTEO [Suspect]
     Dates: start: 20051201
  2. FORTEO PEN (FORTEO PEN) PEN, DISPOSABLE [Concomitant]
  3. TOPAMAX [Concomitant]
  4. PHENOBARBITAL TAB [Concomitant]

REACTIONS (8)
  - COMPLEX PARTIAL SEIZURES [None]
  - ERYTHEMA [None]
  - FATIGUE [None]
  - FEELING HOT [None]
  - MALAISE [None]
  - NAUSEA [None]
  - PERIPHERAL COLDNESS [None]
  - THERAPEUTIC RESPONSE DECREASED [None]
